FAERS Safety Report 6707761-7 (Version None)
Quarter: 2010Q2

REPORT INFORMATION
  Report Type: 
  Country: None (occurrence: None)
  Receive Date: 20100503
  Receipt Date: 20090615
  Transmission Date: 20101027
  Serious: No
  Sender: FDA-Public Use
  Company Number: US-ASTRAZENECA-2009UW15279

PATIENT
  Age: 23 Year
  Sex: Male
  Weight: 66.2 kg

DRUGS (2)
  1. NEXIUM [Suspect]
     Indication: GASTROOESOPHAGEAL REFLUX DISEASE
     Route: 048
     Dates: start: 20090612
  2. ZANTAC [Concomitant]

REACTIONS (5)
  - FLATULENCE [None]
  - MALAISE [None]
  - ORAL DISORDER [None]
  - PHARYNGEAL DISORDER [None]
  - PHARYNGEAL OEDEMA [None]
